FAERS Safety Report 9689719 (Version 1)
Quarter: 2013Q4

REPORT INFORMATION
  Report Type: Spontaneous
  Country: CH (occurrence: CH)
  Receive Date: 20131115
  Receipt Date: 20131115
  Transmission Date: 20140711
  Serious: Yes (Other)
  Sender: FDA-Public Use
  Company Number: CH-JNJFOC-20131010172

PATIENT
  Age: 32 Year
  Sex: Female

DRUGS (4)
  1. REMICADE [Suspect]
     Indication: CROHN^S DISEASE
     Dosage: FREQUENCY: 2 INFUSIONS
     Route: 042
  2. METHOTREXATE [Suspect]
     Indication: CROHN^S DISEASE
     Route: 065
  3. AZATHIOPRINE [Suspect]
     Indication: CROHN^S DISEASE
     Route: 065
  4. PREDNISONE [Suspect]
     Indication: CROHN^S DISEASE
     Route: 065

REACTIONS (4)
  - Premature labour [Recovered/Resolved]
  - Premature rupture of membranes [Recovered/Resolved]
  - Exposure during pregnancy [Recovered/Resolved]
  - Drug ineffective [Recovered/Resolved]
